FAERS Safety Report 16788966 (Version 1)
Quarter: 2019Q3

REPORT INFORMATION
  Report Type: Spontaneous
  Country: GB (occurrence: GB)
  Receive Date: 20190910
  Receipt Date: 20190910
  Transmission Date: 20191005
  Serious: Yes (Other)
  Sender: FDA-Public Use
  Company Number: GB-TEVA-2019-GB-1103500

PATIENT
  Age: 89 Year
  Sex: Female
  Weight: 70 kg

DRUGS (8)
  1. EYE DROPS [Concomitant]
     Active Substance: UNSPECIFIED INGREDIENT
     Dosage: AS DIRECTED, 1 GTT
     Dates: start: 20190326
  2. RANITIDINE. [Suspect]
     Active Substance: RANITIDINE
     Dosage: 300MG/DAY/91DAYS
     Dates: start: 20190215, end: 20190517
  3. DICLOFENAC SODIUM. [Concomitant]
     Active Substance: DICLOFENAC SODIUM
     Indication: OSTEOARTHRITIS
     Dosage: UP TO 3 DAYS, 1 DOSAGE FORM/DAY
     Dates: start: 20190621
  4. EFUDIX [Concomitant]
     Active Substance: FLUOROURACIL
     Dosage: APPLY 1-2 TIMES A DAY FOR 3-4 WEEKS
     Dates: start: 20180604
  5. DIAZEPAM. [Concomitant]
     Active Substance: DIAZEPAM
     Dosage: TAKE 1, 2 OR 3 AT NIGHT ONLY, 7 DAYS
     Dates: start: 20190525, end: 20190601
  6. HYDROXOCOBALAMIN [Concomitant]
     Active Substance: HYDROXOCOBALAMIN
     Dosage: 3 DOSAGE FORM/MONTH
     Dates: start: 20160816
  7. COLECALCIFEROL [Concomitant]
     Active Substance: CHOLECALCIFEROL
     Dosage: MORNING (STOP CALCIUM AND ... 1 DOSAGE FORM/DAY
     Dates: start: 20190220
  8. OMEPRAZOLE. [Concomitant]
     Active Substance: OMEPRAZOLE
     Dosage: IF TAKING ARTHROTEC, 1 DOSAGE FORM/DAY
     Dates: start: 20190808

REACTIONS (2)
  - Facial pain [Recovered/Resolved]
  - Toothache [Recovered/Resolved]

NARRATIVE: CASE EVENT DATE: 20190426
